FAERS Safety Report 22019001 (Version 2)
Quarter: 2023Q1

REPORT INFORMATION
  Report Type: Spontaneous
  Country: FR (occurrence: FR)
  Receive Date: 20230222
  Receipt Date: 20230322
  Transmission Date: 20230418
  Serious: Yes (Other)
  Sender: FDA-Public Use
  Company Number: FR-CELGENE-056-21880-11073102

PATIENT
  Age: 37 Year

DRUGS (23)
  1. REVLIMID [Suspect]
     Active Substance: LENALIDOMIDE
     Indication: Hodgkin^s disease
     Dosage: 15MG DAILY, 2 CYCLES
  2. DACARBAZINE [Suspect]
     Active Substance: DACARBAZINE
     Indication: Hodgkin^s disease
     Dosage: 2MOPPBVD (TWO CYCLES)
  3. DACARBAZINE [Suspect]
     Active Substance: DACARBAZINE
     Dosage: 2ABVD(TWOCYCLES)
  4. VINDESINE [Suspect]
     Active Substance: VINDESINE
     Indication: Hodgkin^s disease
     Dosage: 2ABVD(TWOCYCLES)
  5. VINDESINE [Suspect]
     Active Substance: VINDESINE
     Dosage: 2MOPPBVD (TWO CYCLES)
  6. METHYLPREDNISOLONE [Suspect]
     Active Substance: METHYLPREDNISOLONE
     Indication: Hodgkin^s disease
     Dosage: ESHAP CHEMOTHERAPY ADMINISTERED ONCE EVERY 3 WEEKS
  7. MELPHALAN [Suspect]
     Active Substance: MELPHALAN
     Indication: Hodgkin^s disease
     Dosage: TWO CYCLES BEAM
  8. ADRIAMYCIN [Suspect]
     Active Substance: DOXORUBICIN HYDROCHLORIDE
     Indication: Hodgkin^s disease
     Dosage: 2ABVD(TWOCYCLES)
  9. ETOPOSIDE [Suspect]
     Active Substance: ETOPOSIDE
     Indication: Hodgkin^s disease
     Dosage: ESHAP CHEMOTHERAPY ADMINISTERED ONCE EVERY 3 WEEKS
  10. ETOPOSIDE [Suspect]
     Active Substance: ETOPOSIDE
     Dosage: BEAM
  11. PROCARBAZINE [Suspect]
     Active Substance: PROCARBAZINE
     Indication: Hodgkin^s disease
     Dosage: 2MOPPBVD (TWO CYCLES)
  12. BLEOMYCIN [Suspect]
     Active Substance: BLEOMYCIN SULFATE
     Indication: Hodgkin^s disease
     Dosage: 2MOPPBVD (TWO CYCLES)
  13. BLEOMYCIN [Suspect]
     Active Substance: BLEOMYCIN SULFATE
     Dosage: HODGKIN^S LYMPHOMA
  14. CISPLATIN [Suspect]
     Active Substance: CISPLATIN
     Indication: Hodgkin^s disease
     Dosage: ESHAP CHEMOTHERAPY ADMINISTERED ONCE EVERY 3 WEEKS
  15. MECHLORETHAMINE [Suspect]
     Active Substance: MECHLORETHAMINE
     Indication: Hodgkin^s disease
     Dosage: 2MOPPBVD (TWO CYCLES)
  16. CYTARABINE [Suspect]
     Active Substance: CYTARABINE
     Indication: Hodgkin^s disease
     Dosage: ESHAP CHEMOTHERAPY ADMINISTERED ONCE EVERY 3 WEEKS
  17. CYTARABINE [Suspect]
     Active Substance: CYTARABINE
     Dosage: BEAM
  18. VINCRISTINE [Suspect]
     Active Substance: VINCRISTINE
     Indication: Hodgkin^s disease
     Dosage: 2MOPPBVD (TWO CYCLES)
  19. PREDNISONE [Suspect]
     Active Substance: PREDNISONE
     Indication: Hodgkin^s disease
     Dosage: 2MOPPBVD (TWO CYCLES)
  20. BICNU [Suspect]
     Active Substance: CARMUSTINE
     Indication: Product used for unknown indication
     Dosage: BEAM
  21. SOLU-MEDROL [Concomitant]
     Active Substance: METHYLPREDNISOLONE SODIUM SUCCINATE
     Indication: Hodgkin^s disease
  22. PLATINOL [Concomitant]
     Active Substance: CISPLATIN
     Indication: Hodgkin^s disease
  23. GRANULOCYTE COLONY-STIMULATING FACTOR NOS [Concomitant]
     Active Substance: GRANULOCYTE COLONY-STIMULATING FACTOR NOS
     Indication: Prophylaxis
     Dosage: FREQUENCY TEXT: ON DAY 8 OF EACH COURSE OF CHEMOTHERAPY?DURATION TEXT : FOR 5 DAYS ON EACH COURSE?5

REACTIONS (4)
  - Thrombocytopenia [Recovered/Resolved]
  - Anaemia [Recovered/Resolved]
  - Neutropenia [Recovered/Resolved]
  - Hodgkin^s disease recurrent [Unknown]
